FAERS Safety Report 8096307-X (Version None)
Quarter: 2012Q1

REPORT INFORMATION
  Report Type: 
  Country: None (occurrence: None)
  Receive Date: 20120129
  Receipt Date: 20111222
  Transmission Date: 20120608
  Serious: No
  Sender: FDA-Public Use
  Company Number: US-ABBOTT-11P-163-0885973-00

PATIENT
  Sex: Female
  Weight: 81.72 kg

DRUGS (7)
  1. SYNTHROID [Concomitant]
     Indication: THYROID DISORDER
  2. HUMIRA [Suspect]
     Indication: RHEUMATOID ARTHRITIS
     Dates: start: 20100901, end: 20101001
  3. OXYXOTIN [Concomitant]
     Indication: PAIN
  4. NORCO [Concomitant]
     Indication: BREAKTHROUGH PAIN
  5. ALLEGRA [Concomitant]
     Indication: HYPERSENSITIVITY
  6. DEPAKOTE ER [Concomitant]
     Indication: BIPOLAR DISORDER
  7. SEROQUEL [Concomitant]
     Indication: BIPOLAR DISORDER

REACTIONS (2)
  - NAUSEA [None]
  - MIGRAINE [None]
